FAERS Safety Report 9705847 (Version 1)
Quarter: 2013Q4

REPORT INFORMATION
  Report Type: Spontaneous
  Country: US (occurrence: US)
  Receive Date: 20131122
  Receipt Date: 20131122
  Transmission Date: 20140711
  Serious: Yes (Hospitalization)
  Sender: FDA-Public Use
  Company Number: US-B.I. PHARMACEUTICALS,INC./RIDGEFIELD-2013-BI-38157BP

PATIENT
  Age: 76 Year
  Sex: Male
  Weight: 79 kg

DRUGS (5)
  1. PRADAXA [Suspect]
     Indication: CEREBROVASCULAR ACCIDENT PROPHYLAXIS
     Dosage: 150 MG
     Route: 048
     Dates: start: 20131024
  2. PRADAXA [Suspect]
     Indication: ATRIAL FIBRILLATION
     Dosage: 300 MG
     Route: 048
     Dates: start: 2011, end: 20131023
  3. RAMIPRIL [Concomitant]
  4. DHEA [Concomitant]
     Indication: FATIGUE
  5. CARVEDILOL [Concomitant]

REACTIONS (5)
  - Pneumothorax [Recovered/Resolved]
  - Rib fracture [Not Recovered/Not Resolved]
  - Road traffic accident [Recovered/Resolved]
  - Blood urine present [Recovered/Resolved]
  - Back pain [Not Recovered/Not Resolved]
